FAERS Safety Report 9384610 (Version 1)
Quarter: 2013Q3

REPORT INFORMATION
  Report Type: Spontaneous
  Country: US (occurrence: US)
  Receive Date: 20130705
  Receipt Date: 20130705
  Transmission Date: 20140515
  Serious: Yes (Other)
  Sender: FDA-Public Use
  Company Number: US-BAYER-2013-065914

PATIENT
  Age: 54 Year
  Sex: Male
  Weight: 70.2 kg

DRUGS (7)
  1. STIVARGA [Suspect]
     Indication: COLON CANCER STAGE IV
     Dosage: 160 MG, 4 TABS
     Route: 048
     Dates: start: 20130315, end: 20130326
  2. STIVARGA [Suspect]
     Indication: COLON CANCER STAGE IV
     Dosage: 160 MG, 4 TABS
     Route: 048
     Dates: start: 20130412
  3. STIVARGA [Suspect]
     Indication: COLON CANCER STAGE IV
     Dosage: 160 MG, 4 TABS
     Route: 048
     Dates: start: 20130524
  4. ALLOPURINOL [Concomitant]
     Dosage: 100 MG, QD
  5. EXFORGE [Concomitant]
     Dosage: 7.5 MG, QD
  6. AVALIDE [Concomitant]
     Dosage: 12.5 MG, QD
  7. DEXILANT [Concomitant]
     Dosage: 30 MG, QD

REACTIONS (3)
  - Pain in extremity [Recovering/Resolving]
  - Pain in extremity [Recovering/Resolving]
  - Pain in extremity [Recovering/Resolving]
